FAERS Safety Report 15667171 (Version 3)
Quarter: 2021Q2

REPORT INFORMATION
  Report Type: Spontaneous
  Country: US (occurrence: US)
  Receive Date: 20181128
  Receipt Date: 20210602
  Transmission Date: 20210716
  Serious: No
  Sender: FDA-Public Use
  Company Number: US-ROCHE-2187456

PATIENT
  Sex: Male
  Weight: 97.61 kg

DRUGS (4)
  1. OCREVUS [Suspect]
     Active Substance: OCRELIZUMAB
     Indication: RELAPSING MULTIPLE SCLEROSIS
     Dosage: 2 1/2 DOSES; DOSAGE UNKNOWN ;ONGOING: NO
     Route: 042
     Dates: start: 201703
  2. OCREVUS [Suspect]
     Active Substance: OCRELIZUMAB
     Dosage: DATE OF TREATMENT : 26/JUL/2019, 21/JAN/2020, 13/FEB/2020.?MOST RECENT DOSES: 25/FEB/2020, 11/AUG/20
     Route: 042
     Dates: start: 201804
  3. OCREVUS [Suspect]
     Active Substance: OCRELIZUMAB
     Dosage: FULL DOSE; DATES AND DOSAGE UNKNOWN ;ONGOING: YES
     Route: 042
  4. REQUIP [Concomitant]
     Active Substance: ROPINIROLE HYDROCHLORIDE
     Indication: MUSCLE SPASTICITY
     Dosage: YES
     Dates: start: 2008

REACTIONS (4)
  - No adverse event [Unknown]
  - Therapeutic response decreased [Unknown]
  - Intentional product misuse [Unknown]
  - Off label use [Unknown]
